FAERS Safety Report 8983988 (Version 1)
Quarter: 2012Q4

REPORT INFORMATION
  Report Type: Spontaneous
  Country: US (occurrence: None)
  Receive Date: 20121218
  Receipt Date: 20121218
  Transmission Date: 20130627
  Serious: Yes (Life-Threatening, Hospitalization)
  Sender: FDA-Public Use
  Company Number: None

PATIENT
  Age: 60 Year
  Sex: Female

DRUGS (1)
  1. XARELTO [Suspect]
     Indication: ATRIAL FIBRILLATION
     Dosage: 20mg   every evening   po
     Route: 048

REACTIONS (6)
  - Rectal haemorrhage [None]
  - Haemoglobin decreased [None]
  - Dyspnoea [None]
  - Cough [None]
  - Gastrointestinal disorder [None]
  - Scan abdomen abnormal [None]
